FAERS Safety Report 13626855 (Version 1)
Quarter: 2017Q2

REPORT INFORMATION
  Report Type: Spontaneous
  Country: CL (occurrence: CL)
  Receive Date: 20170608
  Receipt Date: 20170608
  Transmission Date: 20170830
  Serious: Yes (Death)
  Sender: FDA-Public Use
  Company Number: CL-NOVOPROD-547641

PATIENT
  Sex: Female
  Weight: 2.76 kg

DRUGS (3)
  1. PARGEVERINE [Concomitant]
     Active Substance: PARGEVERINE
     Dosage: UNK
     Route: 064
     Dates: end: 20170321
  2. LEVEMIR [Suspect]
     Active Substance: INSULIN DETEMIR
     Indication: GESTATIONAL DIABETES
     Dosage: 30 U, QD
     Route: 064
     Dates: start: 20170203, end: 20170321
  3. METFORMINE [Concomitant]
     Active Substance: METFORMIN HYDROCHLORIDE
     Indication: GESTATIONAL DIABETES
     Dosage: UNK
     Route: 064
     Dates: end: 20170321

REACTIONS (3)
  - Heart disease congenital [Fatal]
  - Foetal exposure during pregnancy [Recovered/Resolved]
  - Premature baby [Unknown]

NARRATIVE: CASE EVENT DATE: 20170203
